FAERS Safety Report 14744835 (Version 1)
Quarter: 2018Q2

REPORT INFORMATION
  Report Type: Spontaneous
  Country: US (occurrence: US)
  Receive Date: 20180405
  Receipt Date: 20180405
  Transmission Date: 20180711
  Serious: Yes (Death, Hospitalization)
  Sender: FDA-Public Use
  Company Number: None

PATIENT
  Age: 68 Year
  Sex: Male
  Weight: 119 kg

DRUGS (1)
  1. GILOTRIF [Suspect]
     Active Substance: AFATINIB
     Indication: EGFR GENE MUTATION
     Dosage: ?          QUANTITY:30 TABLET(S);?
     Route: 048
     Dates: start: 20180220, end: 20180307

REACTIONS (8)
  - Transaminases increased [None]
  - Blood creatinine increased [None]
  - Thrombocytopenia [None]
  - Blood lactate dehydrogenase increased [None]
  - Peripheral swelling [None]
  - Fatigue [None]
  - Rash [None]
  - Hepatorenal syndrome [None]

NARRATIVE: CASE EVENT DATE: 20180220
